FAERS Safety Report 22176099 (Version 1)
Quarter: 2023Q2

REPORT INFORMATION
  Report Type: Spontaneous
  Country: US (occurrence: None)
  Receive Date: 20230404
  Receipt Date: 20230404
  Transmission Date: 20230721
  Serious: No
  Sender: FDA-Public Use
  Company Number: None

PATIENT
  Age: 58 Year
  Sex: Male

DRUGS (2)
  1. FENOFIBRATE [Suspect]
     Active Substance: FENOFIBRATE
     Indication: Hypertriglyceridaemia
  2. FENOFIBRATE [Suspect]
     Active Substance: FENOFIBRATE

REACTIONS (2)
  - Drug ineffective [None]
  - Therapy change [None]

NARRATIVE: CASE EVENT DATE: 20230403
